FAERS Safety Report 4576547-4 (Version None)
Quarter: 2005Q1

REPORT INFORMATION
  Report Type: 
  Country: None (occurrence: None)
  Receive Date: 20050119
  Receipt Date: 20040319
  Transmission Date: 20050727
  Serious: Yes (Hospitalization)
  Sender: FDA-Public Use
  Company Number: A03200400904

PATIENT
  Age: 84 Year
  Sex: Male

DRUGS (1)
  1. PLAVIX [Suspect]
     Indication: CEREBROVASCULAR ACCIDENT
     Dosage: ORAL
     Route: 048
     Dates: start: 20030101

REACTIONS (7)
  - ASTHENIA [None]
  - GAIT DISTURBANCE [None]
  - HAEMORRHAGIC DIATHESIS [None]
  - LOSS OF CONSCIOUSNESS [None]
  - MIGRAINE WITH AURA [None]
  - RASH [None]
  - SPEECH DISORDER [None]
